FAERS Safety Report 4395598-6 (Version None)
Quarter: 2004Q3

REPORT INFORMATION
  Report Type: 
  Country: None (occurrence: None)
  Receive Date: 20040712
  Receipt Date: 20040712
  Transmission Date: 20050211
  Serious: No
  Sender: FDA-Public Use
  Company Number: None

PATIENT
  Sex: Female
  Weight: 40.3701 kg

DRUGS (1)
  1. BICILLIN L-A [Suspect]
     Indication: PHARYNGITIS STREPTOCOCCAL
     Dosage: 1.2 MIL UNITS IM [1 DOSE ONLY]
     Dates: start: 20040622

REACTIONS (4)
  - BLOODY DISCHARGE [None]
  - INJECTION SITE ABSCESS [None]
  - INJECTION SITE CELLULITIS [None]
  - PURULENT DISCHARGE [None]
